FAERS Safety Report 17208141 (Version 1)
Quarter: 2019Q4

REPORT INFORMATION
  Report Type: Spontaneous
  Country: US (occurrence: US)
  Receive Date: 20191227
  Receipt Date: 20191227
  Transmission Date: 20200122
  Serious: No
  Sender: FDA-Public Use
  Company Number: AR-UCBSA-2017021128

PATIENT
  Age: 35 Year
  Sex: Female

DRUGS (12)
  1. CLONAZEPAM. [Concomitant]
     Active Substance: CLONAZEPAM
     Indication: ATRIAL FLUTTER
     Dosage: UNKNOWN DOSE
  2. IMMUNOGLOBULIN [Concomitant]
     Indication: ATRIAL FLUTTER
     Dosage: UNKNOWN DOSE
     Route: 042
  3. RITUXIMAB. [Concomitant]
     Active Substance: RITUXIMAB
     Indication: ATRIAL FLUTTER
     Dosage: UNKNOWN DOSE
  4. DIAZEPAM. [Concomitant]
     Active Substance: DIAZEPAM
     Indication: ATRIAL FLUTTER
     Dosage: UNKNOWN DOSE
  5. BACLOFEN. [Concomitant]
     Active Substance: BACLOFEN
     Indication: ATRIAL FLUTTER
     Dosage: UNKNOWN DOSE
  6. TOPIRAMATE. [Concomitant]
     Active Substance: TOPIRAMATE
     Indication: ATRIAL FLUTTER
     Dosage: UNKNOWN DOSE
  7. LEVETIRACETAM. [Suspect]
     Active Substance: LEVETIRACETAM
     Indication: ATRIAL FLUTTER
     Dosage: UNKNOWN DOSE
  8. GABAPENTIN. [Concomitant]
     Active Substance: GABAPENTIN
     Indication: ATRIAL FLUTTER
     Dosage: UNKNOWN DOSE
  9. MYCOPHENOLIC ACID. [Concomitant]
     Active Substance: MYCOPHENOLIC ACID
     Indication: ATRIAL FLUTTER
     Dosage: UNKNOWN DOSE
  10. LEVETIRACETAM. [Suspect]
     Active Substance: LEVETIRACETAM
     Indication: OFF LABEL USE
  11. LORAZEPAM. [Concomitant]
     Active Substance: LORAZEPAM
     Indication: ATRIAL FLUTTER
     Dosage: UNKNOWN DOSE
  12. CYCLOBENZAPRINE. [Concomitant]
     Active Substance: CYCLOBENZAPRINE
     Indication: ATRIAL FLUTTER
     Dosage: UNKNOWN DOSE

REACTIONS (5)
  - Hypersensitivity [Unknown]
  - Off label use [Unknown]
  - Nausea [Unknown]
  - Drug ineffective for unapproved indication [Unknown]
  - Rash [Unknown]
